FAERS Safety Report 18357688 (Version 1)
Quarter: 2020Q4

REPORT INFORMATION
  Report Type: Other
  Country: CA (occurrence: CA)
  Receive Date: 20201008
  Receipt Date: 20201008
  Transmission Date: 20210114
  Serious: Yes (Hospitalization, Other)
  Sender: FDA-Public Use
  Company Number: CA-ROCHE-2368367

PATIENT
  Age: 68 Year
  Sex: Female

DRUGS (11)
  1. DULOXETINE. [Concomitant]
     Active Substance: DULOXETINE
  2. PANTOPRAZOLE [Concomitant]
     Active Substance: PANTOPRAZOLE
  3. GLUMETZA [Concomitant]
     Active Substance: METFORMIN HYDROCHLORIDE
  4. VIT D [Concomitant]
     Active Substance: VITAMIN D NOS
  5. BUTRANS [Concomitant]
     Active Substance: BUPRENORPHINE
  6. TOCILIZUMAB. [Suspect]
     Active Substance: TOCILIZUMAB
     Indication: RHEUMATOID ARTHRITIS
     Route: 042
     Dates: start: 20190327
  7. TOCILIZUMAB. [Suspect]
     Active Substance: TOCILIZUMAB
     Route: 042
     Dates: start: 20200930
  8. ATORVASTATIN [Concomitant]
     Active Substance: ATORVASTATIN
  9. GLICLAZIDE [Concomitant]
     Active Substance: GLICLAZIDE
  10. METOPROLOL. [Concomitant]
     Active Substance: METOPROLOL
  11. RAMIPRIL. [Concomitant]
     Active Substance: RAMIPRIL

REACTIONS (6)
  - Pneumonia [Unknown]
  - Dyspnoea [Recovered/Resolved]
  - Off label use [Unknown]
  - Viral infection [Unknown]
  - Nasopharyngitis [Not Recovered/Not Resolved]
  - Product use issue [Unknown]

NARRATIVE: CASE EVENT DATE: 20190717
